FAERS Safety Report 9863497 (Version 1)
Quarter: 2014Q1

REPORT INFORMATION
  Report Type: Spontaneous
  Country: US (occurrence: US)
  Receive Date: 20140203
  Receipt Date: 20140203
  Transmission Date: 20141002
  Serious: Yes (Other)
  Sender: FDA-Public Use
  Company Number: US-PFIZER INC-2014031089

PATIENT
  Age: 57 Year
  Sex: Female
  Weight: 55.33 kg

DRUGS (3)
  1. LYRICA [Suspect]
     Indication: FIBROMYALGIA
     Dosage: 75 MG, 3X/DAY
     Dates: start: 2012
  2. VENLAFAXINE HYDROCHLORIDE [Concomitant]
     Indication: DEPRESSION
     Dosage: 350 MG, DAILY
  3. CALCIUM/VITAMIN D [Concomitant]
     Indication: OSTEOPOROSIS
     Dosage: UNK, 2X/DAY

REACTIONS (4)
  - Pneumonia [Unknown]
  - Iron deficiency [Unknown]
  - Pyrexia [Unknown]
  - Pain [Unknown]
